FAERS Safety Report 4349839-1 (Version None)
Quarter: 2004Q2

REPORT INFORMATION
  Report Type: 
  Country: None (occurrence: None)
  Receive Date: 20040428
  Receipt Date: 20040428
  Transmission Date: 20050107
  Serious: Yes (Hospitalization)
  Sender: FDA-Public Use
  Company Number: None

PATIENT
  Sex: Female
  Weight: 46 kg

DRUGS (3)
  1. TRISENOX [Suspect]
     Indication: METASTATIC MALIGNANT MELANOMA
     Dosage: 12MG QD IV 2/23-2/27 16MG Q MON + THURS 3/1-3/22
     Route: 042
     Dates: start: 20040223, end: 20040227
  2. TRISENOX [Suspect]
     Indication: METASTATIC MALIGNANT MELANOMA
     Dosage: 12MG QD IV 2/23-2/27 16MG Q MON + THURS 3/1-3/22
     Route: 042
     Dates: start: 20040301, end: 20040322
  3. ASCORBIC ACID [Suspect]
     Indication: METASTATIC MALIGNANT MELANOMA
     Dosage: 1000 MG QD IV 2/23-2/27 Q MON+THURS IV
     Route: 042
     Dates: start: 20040223, end: 20040322

REACTIONS (4)
  - BRAIN OEDEMA [None]
  - DISEASE PROGRESSION [None]
  - GRAND MAL CONVULSION [None]
  - NERVOUS SYSTEM DISORDER [None]
